FAERS Safety Report 4552487-1 (Version None)
Quarter: 2005Q1

REPORT INFORMATION
  Report Type: 
  Country: None (occurrence: None)
  Receive Date: 20050114
  Receipt Date: 20041222
  Transmission Date: 20050727
  Serious: Yes (Other)
  Sender: FDA-Public Use
  Company Number: PHBS2004JP17335

PATIENT
  Age: 54 Year
  Sex: Male

DRUGS (6)
  1. CELLCEPT [Concomitant]
     Route: 048
  2. METHYLPREDNISOLONE [Concomitant]
     Route: 048
  3. URSODEOXYCHOLIC ACID [Concomitant]
     Route: 048
  4. SPIRONOLACTONE [Concomitant]
     Route: 048
  5. ROXATIDINE ACETATE HCL [Concomitant]
     Route: 048
  6. NEORAL [Suspect]
     Indication: LIVER TRANSPLANT
     Route: 048
     Dates: start: 20040427, end: 20040701

REACTIONS (19)
  - ALANINE AMINOTRANSFERASE INCREASED [None]
  - ASCITES [None]
  - ASPARTATE AMINOTRANSFERASE INCREASED [None]
  - CHOLANGITIS [None]
  - DEHYDRATION [None]
  - DISEASE RECURRENCE [None]
  - GRAFT COMPLICATION [None]
  - HAEMORRHAGE [None]
  - HEPATIC CONGESTION [None]
  - HEPATIC FUNCTION ABNORMAL [None]
  - HEPATIC VEIN STENOSIS [None]
  - HEPATITIS [None]
  - HEPATITIS C [None]
  - HYPERBILIRUBINAEMIA [None]
  - JAUNDICE [None]
  - LIVER DISORDER [None]
  - LIVER TRANSPLANT REJECTION [None]
  - SHOCK [None]
  - WEIGHT DECREASED [None]
